FAERS Safety Report 25719902 (Version 2)
Quarter: 2025Q3

REPORT INFORMATION
  Report Type: Report from Study
  Country: US (occurrence: US)
  Receive Date: 20250825
  Receipt Date: 20250923
  Transmission Date: 20251020
  Serious: No
  Sender: ACADIA PHARMACEUTICALS
  Company Number: US-ACADIA PHARMACEUTICALS INC.-ACA-2025-PIM-009420

PATIENT
  Age: 69 Year
  Sex: Female

DRUGS (9)
  1. NUPLAZID [Suspect]
     Active Substance: PIMAVANSERIN TARTRATE
     Indication: Parkinson^s disease psychosis
     Dosage: 34 MILLIGRAM, QD
     Route: 048
     Dates: start: 20250523
  2. ASPIRIN [Concomitant]
     Active Substance: ASPIRIN
  3. ATORVASTATIN [Concomitant]
     Active Substance: ATORVASTATIN
  4. SINEMET [Concomitant]
     Active Substance: CARBIDOPA\LEVODOPA
  5. SINEMET CR [Concomitant]
     Active Substance: CARBIDOPA\LEVODOPA
  6. DESVENLAFAXINE SUCCINATE [Concomitant]
     Active Substance: DESVENLAFAXINE SUCCINATE
  7. LISINOPRIL [Concomitant]
     Active Substance: LISINOPRIL
  8. PIOGLITAZONE [Concomitant]
     Active Substance: PIOGLITAZONE
  9. PREGABALIN [Concomitant]
     Active Substance: PREGABALIN

REACTIONS (3)
  - Infection [Not Recovered/Not Resolved]
  - Decubitus ulcer [Not Recovered/Not Resolved]
  - Urinary tract infection [Not Recovered/Not Resolved]

NARRATIVE: CASE EVENT DATE: 20250913
